FAERS Safety Report 18359774 (Version 1)
Quarter: 2020Q4

REPORT INFORMATION
  Report Type: Spontaneous
  Country: US (occurrence: US)
  Receive Date: 20201007
  Receipt Date: 20201007
  Transmission Date: 20210114
  Serious: Yes (Death)
  Sender: FDA-Public Use
  Company Number: None

PATIENT
  Age: 64 Year
  Sex: Female

DRUGS (8)
  1. ACETAMINOPHN-- [Concomitant]
  2. MULTIVITAMIN -- [Concomitant]
  3. LIDOCANINE-- [Concomitant]
  4. PROCHLORER-- [Concomitant]
  5. CAPECITABINE, 500MG [Suspect]
     Active Substance: CAPECITABINE
     Indication: NEOPLASM MALIGNANT
     Route: 048
     Dates: start: 20200916, end: 20200926
  6. AMOXICILLIN-- [Concomitant]
  7. FASLODEX-- [Concomitant]
  8. NYSTATIN-- [Concomitant]

REACTIONS (1)
  - Death [None]

NARRATIVE: CASE EVENT DATE: 20200926
